FAERS Safety Report 14849395 (Version 1)
Quarter: 2018Q2

REPORT INFORMATION
  Report Type: Spontaneous
  Country: US (occurrence: US)
  Receive Date: 20180504
  Receipt Date: 20180504
  Transmission Date: 20180711
  Serious: No
  Sender: FDA-Public Use
  Company Number: US-ASTRAZENECA-2018SE45706

PATIENT
  Age: 61 Year
  Sex: Female

DRUGS (1)
  1. FASLODEX [Suspect]
     Active Substance: FULVESTRANT
     Route: 030

REACTIONS (6)
  - Menopause [Unknown]
  - Product use issue [Unknown]
  - Urinary incontinence [Unknown]
  - Vaginal haemorrhage [Unknown]
  - Off label use [Unknown]
  - Blood urine present [Unknown]

NARRATIVE: CASE EVENT DATE: 20180328
